FAERS Safety Report 5122319-1 (Version None)
Quarter: 2006Q4

REPORT INFORMATION
  Report Type: 
  Country: None (occurrence: None)
  Receive Date: 20061003
  Receipt Date: 20060921
  Transmission Date: 20070319
  Serious: Yes (Other)
  Sender: FDA-Public Use
  Company Number: 2006113536

PATIENT
  Age: 18 Month
  Sex: Female
  Weight: 11.7935 kg

DRUGS (1)
  1. CHILDREN'S PEDIACARE MULTI-SYMPTOM COLD (PSEUDOEPHEDRINE, DEXTROAMETHO [Suspect]
     Dosage: 2 TABLESPOONS ONCE, ORAL
     Route: 048
     Dates: start: 20060921, end: 20060921

REACTIONS (1)
  - ACCIDENTAL EXPOSURE [None]
